FAERS Safety Report 7725463-5 (Version None)
Quarter: 2011Q3

REPORT INFORMATION
  Report Type: 
  Country: None (occurrence: None)
  Receive Date: 20110902
  Receipt Date: 20110823
  Transmission Date: 20111222
  Serious: No
  Sender: FDA-Public Use
  Company Number: JP-UCBSA-039792

PATIENT
  Sex: Male

DRUGS (2)
  1. DEPAKENE [Suspect]
     Dosage: TOTAL DAILY DOSE: 1000 MG
     Route: 048
  2. KEPPRA [Suspect]
     Route: 048
     Dates: start: 20110809, end: 20110823

REACTIONS (1)
  - PLATELET COUNT DECREASED [None]
